FAERS Safety Report 7642168-X (Version None)
Quarter: 2011Q3

REPORT INFORMATION
  Report Type: 
  Country: None (occurrence: None)
  Receive Date: 20110728
  Receipt Date: 20110720
  Transmission Date: 20111222
  Serious: Yes (Other)
  Sender: FDA-Public Use
  Company Number: SE-ABBOTT-11P-150-0840922-00

PATIENT
  Age: 65 Year
  Sex: Male

DRUGS (4)
  1. AMITRIPTYLINE HCL [Concomitant]
     Indication: PRODUCT USED FOR UNKNOWN INDICATION
  2. PROPAVAN [Concomitant]
     Indication: PRODUCT USED FOR UNKNOWN INDICATION
  3. CLONAZEPAM [Concomitant]
     Indication: PRODUCT USED FOR UNKNOWN INDICATION
  4. VALPROATE SODIUM [Suspect]
     Indication: BIPOLAR DISORDER
     Route: 048
     Dates: start: 20030101, end: 20080101

REACTIONS (4)
  - GAIT DISTURBANCE [None]
  - ENCEPHALOPATHY [None]
  - COGNITIVE DISORDER [None]
  - PARKINSONISM [None]
